FAERS Safety Report 5387591-1 (Version None)
Quarter: 2007Q3

REPORT INFORMATION
  Report Type: 
  Country: None (occurrence: None)
  Receive Date: 20070711
  Receipt Date: 20070626
  Transmission Date: 20080115
  Serious: Yes (Other)
  Sender: FDA-Public Use
  Company Number: 2007SP012880

PATIENT
  Sex: Female

DRUGS (1)
  1. CHLOR-TRIPOLON (CHLORPHENIRAMINE MALEATE (ORAL) ) (CHLORPHENAMINE MALE [Suspect]
     Indication: NASOPHARYNGITIS
     Dosage: PO
     Route: 048
     Dates: start: 20070101

REACTIONS (1)
  - BURNS THIRD DEGREE [None]
